FAERS Safety Report 13065250 (Version 1)
Quarter: 2016Q4

REPORT INFORMATION
  Report Type: Spontaneous
  Country: CA (occurrence: CA)
  Receive Date: 20161227
  Receipt Date: 20161227
  Transmission Date: 20170207
  Serious: Yes (Life-Threatening, Hospitalization)
  Sender: FDA-Public Use
  Company Number: CA-PFIZER INC-2016593945

PATIENT
  Age: 26 Year
  Sex: Female

DRUGS (3)
  1. ATIVAN [Suspect]
     Active Substance: LORAZEPAM
     Dosage: UNK UNK, SINGLE
     Dates: start: 20161219, end: 20161219
  2. LYRICA [Suspect]
     Active Substance: PREGABALIN
     Dosage: 75 MG AND 150 MG, SINGLE
     Dates: start: 20161219, end: 20161219
  3. LYRICA [Suspect]
     Active Substance: PREGABALIN
     Dosage: 75 MG AND 150 MG, SINGLE
     Dates: start: 20161219, end: 20161219

REACTIONS (2)
  - Suicide attempt [Not Recovered/Not Resolved]
  - Overdose [Not Recovered/Not Resolved]

NARRATIVE: CASE EVENT DATE: 20161219
